FAERS Safety Report 8115185 (Version 2)
Quarter: 2014Q2

REPORT INFORMATION
  Report Type: Spontaneous
  Country: US (occurrence: US)
  Receive Date: 20110831
  Receipt Date: 20140624
  Transmission Date: 20141212
  Serious: Yes (Death, Hospitalization)
  Sender: FDA-Public Use
  Company Number: US-GLAXOSMITHKLINE-A0747313A

PATIENT
  Sex: Female
  Weight: 72.7 kg

DRUGS (5)
  1. AVANDIA [Suspect]
     Indication: TYPE 2 DIABETES MELLITUS
     Dosage: 4MG PER DAY
     Route: 048
     Dates: start: 20020517, end: 20070614
  2. PRILOSEC [Concomitant]
  3. NORVASC [Concomitant]
  4. ALBUTEROL [Concomitant]
  5. PRILOSEC [Concomitant]

REACTIONS (4)
  - Cerebrovascular accident [Unknown]
  - Cardiac failure congestive [Fatal]
  - Respiratory failure [Fatal]
  - Acute coronary syndrome [Unknown]
